FAERS Safety Report 25404751 (Version 1)
Quarter: 2025Q2

REPORT INFORMATION
  Report Type: Spontaneous
  Country: GB (occurrence: GB)
  Receive Date: 20250606
  Receipt Date: 20250606
  Transmission Date: 20250716
  Serious: Yes (Other)
  Sender: IDORSIA PHARMACEUTICALS
  Company Number: None

PATIENT
  Age: 79 Year
  Sex: Male
  Weight: 78 kg

DRUGS (6)
  1. QUVIVIQ [Suspect]
     Active Substance: DARIDOREXANT
     Indication: Product used for unknown indication
     Dosage: 50 MG, QD
     Route: 048
     Dates: start: 20250317, end: 20250322
  2. BETAMETHASONE\CALCIPOTRIENE [Concomitant]
     Active Substance: BETAMETHASONE\CALCIPOTRIENE
     Dates: start: 20250303
  3. AMLODIPINE [Concomitant]
     Active Substance: AMLODIPINE BESYLATE
     Indication: Essential hypertension
     Dates: start: 20250317
  4. RIVAROXABAN [Concomitant]
     Active Substance: RIVAROXABAN
     Dates: start: 20250408
  5. SPIKEVAX [Concomitant]
     Active Substance: CX-046684
     Dates: start: 20250409
  6. SPIKEVAX [Concomitant]
     Active Substance: CX-046684
     Dates: start: 20250409

REACTIONS (1)
  - Asthma [Recovered/Resolved]

NARRATIVE: CASE EVENT DATE: 20250319
